FAERS Safety Report 21134016 (Version 2)
Quarter: 2022Q3

REPORT INFORMATION
  Report Type: Spontaneous
  Country: GR (occurrence: GR)
  Receive Date: 20220726
  Receipt Date: 20220914
  Transmission Date: 20221027
  Serious: No
  Sender: FDA-Public Use
  Company Number: GR-PFIZER INC-PV202200020918

PATIENT
  Age: 9 Year
  Sex: Male
  Weight: 23 kg

DRUGS (1)
  1. GENOTROPIN [Suspect]
     Active Substance: SOMATROPIN
     Indication: Growth hormone deficiency
     Dosage: 0.8 MG, 6 DAYS A WEEK (DAILY EXCEPT FOR ONE DAY-OFF EVERY SUNDAY)
     Route: 058
     Dates: start: 2018

REACTIONS (3)
  - Drug dose omission by device [Unknown]
  - Wrong technique in device usage process [Unknown]
  - Device breakage [Unknown]

NARRATIVE: CASE EVENT DATE: 20220708
